FAERS Safety Report 8990727 (Version 1)
Quarter: 2012Q4

REPORT INFORMATION
  Report Type: 
  Country: US (occurrence: US)
  Receive Date: 20121228
  Receipt Date: 20121228
  Transmission Date: 20130627
  Serious: No
  Sender: FDA-Public Use
  Company Number: US-PFIZER INC-2012329089

PATIENT
  Age: 52 Year
  Sex: Female
  Weight: 73.9 kg

DRUGS (5)
  1. PREMARIN [Suspect]
     Indication: VAGINAL DRYNESS
     Dosage: UNK, 1x/day
     Route: 067
     Dates: start: 20121224
  2. PREMARIN [Suspect]
     Indication: MENOPAUSAL SYMPTOMS
  3. CLONIDINE [Concomitant]
     Indication: HYPERTENSION
     Dosage: UNK
  4. ALPRAZOLAM [Concomitant]
     Indication: ANXIETY
     Dosage: UNK
  5. ALPRAZOLAM [Concomitant]
     Indication: PANIC DISORDER

REACTIONS (1)
  - Libido increased [Unknown]
